FAERS Safety Report 7232761-0 (Version None)
Quarter: 2011Q1

REPORT INFORMATION
  Report Type: 
  Country: None (occurrence: None)
  Receive Date: 20110119
  Receipt Date: 20110103
  Transmission Date: 20110831
  Serious: Yes (Other)
  Sender: FDA-Public Use
  Company Number: US-PFIZER INC-US-WYE-H16195210

PATIENT
  Sex: Female

DRUGS (4)
  1. EFFEXOR [Suspect]
     Dosage: UNKNOWN DOSE, REDUCED ON AN UNKNOWN DATE IN 2010
     Route: 065
  2. NEURONTIN [Suspect]
     Dosage: INCREASED TO 700 MG ON HER OWN
     Route: 065
     Dates: start: 20100101
  3. NEURONTIN [Suspect]
     Dosage: 300 MG, FREQUENCY UNKNOWN
     Route: 065
     Dates: start: 20100629, end: 20100101
  4. NEURONTIN [Suspect]
     Dosage: 400 MG, FREQUENCY UNKNOWN
     Route: 065
     Dates: start: 20100101, end: 20100101

REACTIONS (3)
  - TREMOR [None]
  - BIPOLAR DISORDER [None]
  - MANIA [None]
